FAERS Safety Report 9240535 (Version 1)
Quarter: 2013Q1

REPORT INFORMATION
  Report Type: Spontaneous
  Country: US (occurrence: None)
  Receive Date: 20121120
  Receipt Date: 20121120
  Transmission Date: 20140127
  Serious: No
  Sender: FDA-Public Use
  Company Number: 1000038583

PATIENT
  Age: 28 Year
  Sex: Female

DRUGS (4)
  1. VIIBRYD [Suspect]
     Indication: DEPRESSION
     Dosage: 10 MG, (10 MG, 1 IN 1 D) , ORAL
     Route: 048
     Dates: start: 20120828, end: 20120903
  2. VIIBRYD (VILAZODONE HYDROCHLORIDE) (40 MILLIGRAM, TABLETS)? [Concomitant]
     Dosage: 40 MG,  (40 MG, 1 IN 1 D), ORAL
     Route: 048
     Dates: start: 20120911, end: 20120911
  3. CLONAZEPAM (CLONAZEPAM)(CLONAZEPAM) [Concomitant]
  4. CAMREE (EUGYNON) (-EUGYNON) [Concomitant]

REACTIONS (3)
  - Fatigue [None]
  - Nausea [None]
  - Diarrhoea [None]
